FAERS Safety Report 20390309 (Version 2)
Quarter: 2022Q1

REPORT INFORMATION
  Report Type: Report from Study
  Country: KR (occurrence: KR)
  Receive Date: 20220128
  Receipt Date: 20220217
  Transmission Date: 20220423
  Serious: Yes (Other)
  Sender: FDA-Public Use
  Company Number: KR-TAKEDA-2022TUS004494

PATIENT
  Sex: Male
  Weight: 58 kg

DRUGS (15)
  1. IXAZOMIB [Suspect]
     Active Substance: IXAZOMIB
     Indication: Plasma cell myeloma
     Dosage: 4 MILLIGRAM
     Route: 065
     Dates: start: 20211119
  2. DEXAMETHASONE [Suspect]
     Active Substance: DEXAMETHASONE
     Indication: Plasma cell myeloma
     Dosage: 20 MILLIGRAM
     Route: 065
     Dates: start: 20211119
  3. LENALIDOMIDE [Suspect]
     Active Substance: LENALIDOMIDE
     Indication: Plasma cell myeloma
     Dosage: 15 MILLIGRAM, QD
     Route: 065
     Dates: start: 20211119
  4. ASPIRIN [Concomitant]
     Active Substance: ASPIRIN
     Indication: Coronary artery disease
     Dosage: 100 MILLIGRAM, QD
     Route: 048
  5. SULFAMETHOXAZOLE\TRIMETHOPRIM [Concomitant]
     Active Substance: SULFAMETHOXAZOLE\TRIMETHOPRIM
     Indication: Infection prophylaxis
     Dosage: 1 DOSAGE FORM, BID
     Route: 048
  6. K CAB [Concomitant]
     Indication: Gastritis prophylaxis
     Dosage: 50 MILLIGRAM, QD
     Route: 048
  7. DIABEX [Concomitant]
     Active Substance: METFORMIN HYDROCHLORIDE
     Indication: Diabetes mellitus
     Dosage: 1000 MILLIGRAM, BID
     Route: 048
  8. Cavedil [Concomitant]
     Indication: Hypertension
     Dosage: 12.5 MILLIGRAM, QD
     Route: 048
  9. RABENEX [Concomitant]
     Indication: Gastritis prophylaxis
     Dosage: 20 MILLIGRAM, QD
     Route: 048
  10. GLICLAZIDE [Concomitant]
     Active Substance: GLICLAZIDE
     Indication: Diabetes mellitus
     Dosage: 60 MILLIGRAM, BID
     Route: 048
  11. NEWVIX [Concomitant]
     Indication: Coronary artery disease
     Dosage: UNK UNK, QD
     Route: 048
  12. SUVASTA [Concomitant]
     Indication: Hyperlipidaemia
     Dosage: UNK UNK, QD
     Route: 048
  13. NESINA ACT [Concomitant]
     Indication: Diabetes mellitus
     Dosage: UNK UNK, QD
     Route: 048
  14. ASPIRIN [Concomitant]
     Active Substance: ASPIRIN
     Indication: Angiocardiogram
     Dosage: 200 MILLIGRAM, QD
     Route: 048
     Dates: start: 20211206, end: 20211206
  15. PLAVIX [Concomitant]
     Active Substance: CLOPIDOGREL BISULFATE
     Indication: Angiocardiogram
     Dosage: 225 MILLIGRAM, QD
     Route: 048
     Dates: start: 20211206, end: 20211206

REACTIONS (1)
  - Hyperkalaemia [Recovered/Resolved]

NARRATIVE: CASE EVENT DATE: 20211216
